FAERS Safety Report 15295493 (Version 1)
Quarter: 2018Q3

REPORT INFORMATION
  Report Type: Spontaneous
  Country: CH (occurrence: CH)
  Receive Date: 20180820
  Receipt Date: 20180820
  Transmission Date: 20181010
  Serious: Yes (Other)
  Sender: FDA-Public Use
  Company Number: PHHY2018CH071223

PATIENT
  Age: 70 Year
  Sex: Female
  Weight: 66 kg

DRUGS (4)
  1. IBRANCE [Suspect]
     Active Substance: PALBOCICLIB
     Indication: BREAST CANCER
     Dosage: 125 MG, QD (FOR 3 WEEKS OVER 4)
     Route: 048
     Dates: start: 20180614, end: 20180704
  2. LETROZOLE. [Suspect]
     Active Substance: LETROZOLE
     Indication: METASTASES TO BONE
  3. LETROZOLE. [Suspect]
     Active Substance: LETROZOLE
     Indication: BREAST CANCER
     Dosage: UNK
     Route: 065
  4. IBRANCE [Suspect]
     Active Substance: PALBOCICLIB
     Indication: METASTASES TO BONE
     Dosage: 100 MG, QD (FOR 3 WEEKS OVER 4)
     Route: 048
     Dates: start: 20180723

REACTIONS (2)
  - Aphthous ulcer [Recovering/Resolving]
  - Renal impairment [Recovering/Resolving]
